FAERS Safety Report 7088267-5 (Version None)
Quarter: 2010Q4

REPORT INFORMATION
  Report Type: 
  Country: None (occurrence: None)
  Receive Date: 20101108
  Receipt Date: 20101027
  Transmission Date: 20110411
  Serious: Yes (Life-Threatening, Hospitalization)
  Sender: FDA-Public Use
  Company Number: US-JNJFOC-20101100910

PATIENT
  Age: 46 Year
  Sex: Female

DRUGS (8)
  1. TRAMADOL HYDROCHLORIDE [Suspect]
     Indication: PAIN
     Route: 065
  2. OLANZAPINE [Interacting]
     Indication: PRODUCT USED FOR UNKNOWN INDICATION
     Route: 065
  3. ZOLPIDEM [Concomitant]
  4. METAXALONE [Concomitant]
  5. INSULIN GLARGINE [Concomitant]
     Indication: DIABETES MELLITUS
  6. INSULIN LISPRO [Concomitant]
     Indication: DIABETES MELLITUS
  7. TRIMETHOPRIM + SULFAMETHOXAZOLE [Concomitant]
     Indication: URINARY TRACT INFECTION
     Dosage: 160/800 MG
  8. CITALOPRAM HYDROBROMIDE [Concomitant]

REACTIONS (6)
  - DELIRIUM [None]
  - DRUG INTERACTION [None]
  - HYPERTENSION [None]
  - SEROTONIN SYNDROME [None]
  - TACHYCARDIA [None]
  - TREMOR [None]
